FAERS Safety Report 20855664 (Version 1)
Quarter: 2022Q2

REPORT INFORMATION
  Report Type: Spontaneous
  Country: US (occurrence: None)
  Receive Date: 20220520
  Receipt Date: 20220520
  Transmission Date: 20220720
  Serious: Yes (unspecified)
  Sender: FDA-Public Use
  Company Number: None

PATIENT
  Sex: Female

DRUGS (1)
  1. EVEROLIMUS [Suspect]
     Active Substance: EVEROLIMUS
     Indication: Breast cancer
     Dosage: 10MG DAILY BY MOUTH?
     Route: 048
     Dates: start: 20220215

REACTIONS (2)
  - Rash [None]
  - Fatigue [None]
